FAERS Safety Report 21029080 (Version 6)
Quarter: 2025Q1

REPORT INFORMATION
  Report Type: Report from Study
  Country: US (occurrence: US)
  Receive Date: 20220630
  Receipt Date: 20250131
  Transmission Date: 20250409
  Serious: Yes (Hospitalization, Other)
  Sender: TAKEDA
  Company Number: US-TAKEDA-US202032186

PATIENT
  Sex: Female

DRUGS (4)
  1. HUMAN IMMUNOGLOBULIN G [Suspect]
     Active Substance: HUMAN IMMUNOGLOBULIN G
     Indication: Primary immunodeficiency syndrome
  2. HUMAN IMMUNOGLOBULIN G [Suspect]
     Active Substance: HUMAN IMMUNOGLOBULIN G
     Indication: Immunodeficiency common variable
     Dosage: 15 GRAM, 1/WEEK
  3. HUMAN IMMUNOGLOBULIN G [Suspect]
     Active Substance: HUMAN IMMUNOGLOBULIN G
     Dosage: 20 GRAM, 1/WEEK
  4. COVID-19 VACCINE NOS [Suspect]
     Active Substance: COVID-19 VACCINE
     Indication: Product used for unknown indication

REACTIONS (12)
  - Corneal dystrophy [Not Recovered/Not Resolved]
  - Eye ulcer [Not Recovered/Not Resolved]
  - Multiple sclerosis [Unknown]
  - Blindness [Unknown]
  - Pneumonia [Recovered/Resolved]
  - Urticarial vasculitis [Unknown]
  - Malaise [Unknown]
  - Cardiac disorder [Unknown]
  - Bronchitis [Recovered/Resolved]
  - Lung disorder [Unknown]
  - Lymphadenopathy [Unknown]
  - Myalgia [Unknown]
